FAERS Safety Report 23440114 (Version 1)
Quarter: 2024Q1

REPORT INFORMATION
  Report Type: Spontaneous
  Country: US (occurrence: US)
  Receive Date: 20240124
  Receipt Date: 20240124
  Transmission Date: 20240410
  Serious: Yes (Life-Threatening, Other)
  Sender: FDA-Public Use
  Company Number: US-BoehringerIngelheim-2024-BI-004255

PATIENT
  Age: 8 Decade
  Sex: Male

DRUGS (1)
  1. OFEV [Suspect]
     Active Substance: NINTEDANIB
     Indication: Idiopathic pulmonary fibrosis
     Dates: start: 202401

REACTIONS (2)
  - Hypertensive crisis [Unknown]
  - Liver function test increased [Unknown]
